FAERS Safety Report 16877632 (Version 2)
Quarter: 2019Q4

REPORT INFORMATION
  Report Type: Spontaneous
  Country: US (occurrence: US)
  Receive Date: 20191002
  Receipt Date: 20191009
  Transmission Date: 20200122
  Serious: No
  Sender: FDA-Public Use
  Company Number: US-PFIZER INC-2019424807

PATIENT
  Age: 6 Decade
  Sex: Female

DRUGS (1)
  1. CHANTIX [Suspect]
     Active Substance: VARENICLINE TARTRATE
     Indication: DEPRESSION
     Dosage: 1 MG, UNK

REACTIONS (3)
  - Neuropsychiatric symptoms [Unknown]
  - Product use in unapproved indication [Unknown]
  - Off label use [Unknown]
